FAERS Safety Report 26143053 (Version 1)
Quarter: 2025Q4

REPORT INFORMATION
  Report Type: Spontaneous
  Country: BR (occurrence: BR)
  Receive Date: 20251211
  Receipt Date: 20251211
  Transmission Date: 20260118
  Serious: Yes (Other)
  Sender: JOHNSON AND JOHNSON
  Company Number: BR-JNJFOC-20251213636

PATIENT
  Age: 36 Year
  Sex: Male
  Weight: 101 kg

DRUGS (1)
  1. SIMPONI [Suspect]
     Active Substance: GOLIMUMAB
     Indication: Ankylosing spondylitis
     Dosage: LAST APPLICATION ON 22-OCT-2025
     Route: 058

REACTIONS (1)
  - Leprosy [Unknown]

NARRATIVE: CASE EVENT DATE: 20251127
